FAERS Safety Report 16482958 (Version 1)
Quarter: 2019Q2

REPORT INFORMATION
  Report Type: Spontaneous
  Country: MX (occurrence: MX)
  Receive Date: 20190627
  Receipt Date: 20190627
  Transmission Date: 20190711
  Serious: No
  Sender: FDA-Public Use
  Company Number: MX-BEH-2019103400

PATIENT
  Age: 44 Year
  Sex: Male
  Weight: 72 kg

DRUGS (8)
  1. HAEMATE P [Suspect]
     Active Substance: ANTIHEMOPHILIC FACTOR HUMAN
     Indication: HAEMOPHILIA
     Dosage: 500 INTERNATIONAL UNIT (3 VIALS OF 500 IU, APPLIED IN DIFFERENT TIMES), TOT
     Route: 042
     Dates: start: 20190603, end: 20190604
  2. HAEMATE P [Suspect]
     Active Substance: ANTIHEMOPHILIC FACTOR HUMAN
     Dosage: 500 INTERNATIONAL UNIT (3 VIALS OF 500 IU, APPLIED IN DIFFERENT TIMES), TOT
     Route: 042
     Dates: start: 20190604, end: 20190604
  3. HAEMATE P [Suspect]
     Active Substance: ANTIHEMOPHILIC FACTOR HUMAN
     Dosage: 500 INTERNATIONAL UNIT (3 VIALS OF 500 IU, APPLIED IN DIFFERENT TIMES), TOT
     Route: 042
     Dates: start: 20190603, end: 20190603
  4. HAEMATE P [Suspect]
     Active Substance: ANTIHEMOPHILIC FACTOR HUMAN
     Dosage: 500 INTERNATIONAL UNIT (3 VIALS OF 500 IU, APPLIED IN DIFFERENT TIMES), TOT
     Route: 042
     Dates: start: 20190603
  5. HAEMATE P [Suspect]
     Active Substance: ANTIHEMOPHILIC FACTOR HUMAN
     Dosage: 500 INTERNATIONAL UNIT (3 VIALS OF 500 IU, APPLIED IN DIFFERENT TIMES), TOT
     Route: 042
     Dates: start: 20190603
  6. HAEMATE P [Suspect]
     Active Substance: ANTIHEMOPHILIC FACTOR HUMAN
     Dosage: 500 INTERNATIONAL UNIT (3 VIALS OF 500 IU, APPLIED IN DIFFERENT TIMES), TOT
     Route: 042
     Dates: start: 20190604, end: 20190604
  7. HAEMATE P [Suspect]
     Active Substance: ANTIHEMOPHILIC FACTOR HUMAN
     Indication: HAEMOPHILIA
     Dosage: 500 INTERNATIONAL UNIT (3 VIALS OF 500 IU, APPLIED IN DIFFERENT TIMES), TOT
     Route: 042
     Dates: start: 20190603, end: 20190604
  8. HAEMATE P [Suspect]
     Active Substance: ANTIHEMOPHILIC FACTOR HUMAN
     Dosage: 500 INTERNATIONAL UNIT (3 VIALS OF 500 IU, APPLIED IN DIFFERENT TIMES), TOT
     Route: 042
     Dates: start: 20190603, end: 20190603

REACTIONS (1)
  - Rash [Unknown]

NARRATIVE: CASE EVENT DATE: 20190604
